FAERS Safety Report 23132842 (Version 1)
Quarter: 2023Q4

REPORT INFORMATION
  Report Type: Spontaneous
  Country: US (occurrence: US)
  Receive Date: 20231101
  Receipt Date: 20231101
  Transmission Date: 20240110
  Serious: No
  Sender: FDA-Public Use
  Company Number: US-JNJFOC-20231030910

PATIENT
  Sex: Female

DRUGS (1)
  1. TYLENOL 8 HR ARTHRITIS PAIN [Suspect]
     Active Substance: ACETAMINOPHEN
     Indication: Back pain
     Dosage: TOOK PRODUCT FOR 2 DAYS, FOR ONE DAY THE PATIENT TOOK 2 CAPLETS.
     Route: 065

REACTIONS (2)
  - Dizziness [Recovered/Resolved]
  - Inappropriate schedule of product administration [Unknown]
